FAERS Safety Report 19986861 (Version 1)
Quarter: 2021Q4

REPORT INFORMATION
  Report Type: Spontaneous
  Country: CN (occurrence: CN)
  Receive Date: 20211022
  Receipt Date: 20211022
  Transmission Date: 20220303
  Serious: Yes (Other)
  Sender: FDA-Public Use
  Company Number: CN-BAXTER-2021BAX032666

PATIENT
  Age: 48 Year
  Sex: Female
  Weight: 44 kg

DRUGS (4)
  1. SODIUM CHLORIDE [Suspect]
     Active Substance: SODIUM CHLORIDE
     Indication: Fluid replacement
     Route: 041
     Dates: start: 20210923, end: 20210923
  2. SODIUM CHLORIDE [Suspect]
     Active Substance: SODIUM CHLORIDE
     Indication: Medication dilution
     Dosage: DOSE RE-INTRODUCED
     Route: 041
  3. DOCETAXEL [Suspect]
     Active Substance: DOCETAXEL
     Indication: Chemotherapy
     Route: 041
     Dates: start: 20210923, end: 20210923
  4. DOCETAXEL [Suspect]
     Active Substance: DOCETAXEL
     Dosage: DOSE RE-INTRODUCED
     Route: 041

REACTIONS (4)
  - Flushing [Recovered/Resolved]
  - Palpitations [Recovered/Resolved]
  - Chest discomfort [Recovered/Resolved]
  - Dyspnoea [Unknown]

NARRATIVE: CASE EVENT DATE: 20210923
